FAERS Safety Report 5226853-5 (Version None)
Quarter: 2007Q1

REPORT INFORMATION
  Report Type: 
  Country: None (occurrence: None)
  Receive Date: 20070130
  Receipt Date: 20070116
  Transmission Date: 20070707
  Serious: Yes (Hospitalization)
  Sender: FDA-Public Use
  Company Number: 2006S1000292

PATIENT
  Age: 69 Year
  Sex: Female
  Weight: 70 kg

DRUGS (10)
  1. CUBICIN [Suspect]
     Indication: ENTEROCOCCAL BACTERAEMIA
     Dosage: 350 MG;Q24H;IV
     Route: 042
     Dates: start: 20061118, end: 20061120
  2. CUBICIN [Suspect]
     Indication: PATHOGEN RESISTANCE
     Dosage: 350 MG;Q24H;IV
     Route: 042
     Dates: start: 20061118, end: 20061120
  3. VALSARTAN [Concomitant]
  4. ESOMEPRAZOLE MAGNESIUM [Concomitant]
  5. METHYLPREDNISOLONE 16MG TAB [Concomitant]
  6. TACROLIMUS [Concomitant]
  7. SERTRALINE [Concomitant]
  8. URSODIOL [Concomitant]
  9. ESTROGEN/MEDROXYPROGESTERONE [Concomitant]
  10. AZATHIOPRINE [Concomitant]

REACTIONS (5)
  - ADRENAL INSUFFICIENCY [None]
  - BLOOD SODIUM DECREASED [None]
  - DYSPNOEA [None]
  - POLYNEUROPATHY [None]
  - RHABDOMYOLYSIS [None]
